FAERS Safety Report 13730126 (Version 3)
Quarter: 2019Q4

REPORT INFORMATION
  Report Type: Spontaneous
  Country: US (occurrence: US)
  Receive Date: 20170707
  Receipt Date: 20191223
  Transmission Date: 20200122
  Serious: Yes (Death, Hospitalization)
  Sender: FDA-Public Use
  Company Number: US-JNJFOC-20170519233

PATIENT
  Age: 60 Year
  Sex: Female

DRUGS (4)
  1. XARELTO [Suspect]
     Active Substance: RIVAROXABAN
     Indication: THROMBOSIS PROPHYLAXIS
     Route: 048
     Dates: start: 20160101
  2. XARELTO [Suspect]
     Active Substance: RIVAROXABAN
     Indication: PULMONARY EMBOLISM
  3. XARELTO [Suspect]
     Active Substance: RIVAROXABAN
     Indication: SURGERY
     Route: 048
     Dates: start: 20160502, end: 20160503
  4. HEPARIN [Suspect]
     Active Substance: HEPARIN SODIUM
     Indication: PRODUCT USED FOR UNKNOWN INDICATION
     Dosage: 5000 UNITS/1 ML, 7500 UNITS,1.5 ML
     Route: 042

REACTIONS (6)
  - Thrombocytopenia [Unknown]
  - Injection site haemorrhage [Unknown]
  - International normalised ratio increased [Recovering/Resolving]
  - Vaginal haemorrhage [Recovering/Resolving]
  - Acute kidney injury [Unknown]
  - Acute haemorrhagic ulcerative colitis [Fatal]

NARRATIVE: CASE EVENT DATE: 201603
